FAERS Safety Report 7223338-1 (Version None)
Quarter: 2011Q1

REPORT INFORMATION
  Report Type: 
  Country: None (occurrence: None)
  Receive Date: 20110112
  Receipt Date: 20100510
  Transmission Date: 20110831
  Serious: No
  Sender: FDA-Public Use
  Company Number: US-ALLERGAN-1006084US

PATIENT
  Age: 64 Year
  Sex: Male

DRUGS (7)
  1. RESTASIS [Suspect]
     Indication: DRY EYE
     Dosage: UNK
     Route: 047
     Dates: start: 20100412
  2. VITAMIN D [Concomitant]
     Dosage: EVERY 6 DAYS
  3. VITAMIN B [Concomitant]
     Dosage: UNK
  4. LOVAZA [Concomitant]
     Dosage: UNK
  5. PREVACID [Concomitant]
     Indication: GASTROOESOPHAGEAL REFLUX DISEASE
     Dosage: UNK
  6. CENTRUM SILVER [Concomitant]
     Dosage: UNK
  7. REFRESH CLASSIC [Concomitant]
     Dosage: UNK

REACTIONS (2)
  - DYSGEUSIA [None]
  - SINUS CONGESTION [None]
